FAERS Safety Report 18721834 (Version 1)
Quarter: 2021Q1

REPORT INFORMATION
  Report Type: Other
  Country: US (occurrence: US)
  Receive Date: 20210111
  Receipt Date: 20210111
  Transmission Date: 20210419
  Serious: Yes (Death, Hospitalization, Other)
  Sender: FDA-Public Use
  Company Number: US-ROCHE-2530895

PATIENT

DRUGS (4)
  1. ETOPOSIDE. [Suspect]
     Active Substance: ETOPOSIDE
     Indication: SMALL CELL LUNG CANCER EXTENSIVE STAGE
     Dosage: ON D1, D2 AND D3
     Route: 042
  2. CARBOPLATIN. [Suspect]
     Active Substance: CARBOPLATIN
     Indication: SMALL CELL LUNG CANCER EXTENSIVE STAGE
     Route: 042
  3. ATEZOLIZUMAB. [Suspect]
     Active Substance: ATEZOLIZUMAB
     Indication: SMALL CELL LUNG CANCER EXTENSIVE STAGE
     Route: 041
  4. TRILACICLIB [Suspect]
     Active Substance: TRILACICLIB
     Indication: SMALL CELL LUNG CANCER EXTENSIVE STAGE
     Dosage: 30?MINUTE IV INFUSION, ONCE DAILY ON DAY (D) 1, D2 AND D3, PRIOR TO E/P/A THERAPY.
     Route: 042

REACTIONS (26)
  - Haemoptysis [Fatal]
  - Myelosuppression [Unknown]
  - Dizziness [Unknown]
  - Failure to thrive [Fatal]
  - Anaemia [Unknown]
  - Leukopenia [Unknown]
  - Dyspnoea [Unknown]
  - Cough [Unknown]
  - Febrile neutropenia [Unknown]
  - Urinary tract infection [Unknown]
  - Aspartate aminotransferase increased [Unknown]
  - Dehydration [Unknown]
  - Non-cardiac chest pain [Unknown]
  - Fatigue [Unknown]
  - Nausea [Unknown]
  - White blood cell count decreased [Unknown]
  - Diarrhoea [Unknown]
  - Decreased appetite [Unknown]
  - Neutropenia [Unknown]
  - Asthenia [Unknown]
  - Constipation [Unknown]
  - Thrombocytopenia [Unknown]
  - Sepsis [Fatal]
  - Neutrophil count decreased [Unknown]
  - Pneumonia [Fatal]
  - Platelet count decreased [Unknown]
